FAERS Safety Report 7381864-9 (Version None)
Quarter: 2011Q1

REPORT INFORMATION
  Report Type: 
  Country: None (occurrence: None)
  Receive Date: 20110329
  Receipt Date: 20110323
  Transmission Date: 20110831
  Serious: Yes (Hospitalization)
  Sender: FDA-Public Use
  Company Number: FR-PFIZER INC-2011064038

PATIENT
  Age: 86 Year
  Sex: Female

DRUGS (4)
  1. AMLOR [Concomitant]
     Dosage: 5 MG, UNK
  2. MOPRAL [Concomitant]
     Dosage: 20 MG, UNK
  3. XANAX [Suspect]
     Indication: ANXIETY
     Dosage: 0.25 MG, 2X/DAY
     Route: 048
     Dates: start: 20101219, end: 20101222
  4. FLUDEX [Concomitant]
     Dosage: 1.5 MG, UNK

REACTIONS (3)
  - MALAISE [None]
  - HYPOTHERMIA [None]
  - BRADYPNOEA [None]
